FAERS Safety Report 12852155 (Version 2)
Quarter: 2017Q1

REPORT INFORMATION
  Report Type: Spontaneous
  Country: IT (occurrence: IT)
  Receive Date: 20161017
  Receipt Date: 20170123
  Transmission Date: 20170428
  Serious: Yes (Other)
  Sender: FDA-Public Use
  Company Number: IT-009507513-1610ITA005505

PATIENT
  Age: 77 Year
  Sex: Female

DRUGS (9)
  1. DILATREND [Concomitant]
     Active Substance: CARVEDILOL
  2. REBETOL [Suspect]
     Active Substance: RIBAVIRIN
     Indication: CHRONIC HEPATITIS C
     Dosage: 400 MG, DAILY
     Route: 048
     Dates: start: 20160818, end: 20160818
  3. LANTUS [Concomitant]
     Active Substance: INSULIN GLARGINE
     Dosage: STRENGTH : 100 IU/ML
  4. CARDURA [Concomitant]
     Active Substance: DOXAZOSIN MESYLATE
  5. RIBAVIRIN. [Concomitant]
     Active Substance: RIBAVIRIN
     Dosage: UNK
     Dates: start: 20160818
  6. APIDRA [Concomitant]
     Active Substance: INSULIN GLULISINE
     Dosage: STRENGTH : 100 IU/ML
  7. FOLIC ACID. [Concomitant]
     Active Substance: FOLIC ACID
  8. HARVONI [Concomitant]
     Active Substance: LEDIPASVIR\SOFOSBUVIR
  9. OLPREZIDE [Concomitant]
     Active Substance: HYDROCHLOROTHIAZIDE\OLMESARTAN MEDOXOMIL

REACTIONS (1)
  - Hypoglycaemia [Recovered/Resolved]

NARRATIVE: CASE EVENT DATE: 20160818
